FAERS Safety Report 17795063 (Version 1)
Quarter: 2020Q2

REPORT INFORMATION
  Report Type: Spontaneous
  Country: US (occurrence: US)
  Receive Date: 20200515
  Receipt Date: 20200515
  Transmission Date: 20200714
  Serious: No
  Sender: FDA-Public Use
  Company Number: US-BAUSCH-BL-2020-013251

PATIENT
  Age: 14 Year
  Sex: Female

DRUGS (2)
  1. TRETINOIN. [Suspect]
     Active Substance: TRETINOIN
     Indication: ACNE
     Dosage: BEFORE BED
     Route: 061
     Dates: start: 202001, end: 202004
  2. TRETINOIN. [Suspect]
     Active Substance: TRETINOIN
     Dosage: BEFORE BED
     Route: 061
     Dates: start: 20200429, end: 20200430

REACTIONS (3)
  - Chemical burn of skin [Not Recovered/Not Resolved]
  - Erythema [Not Recovered/Not Resolved]
  - Product quality issue [Unknown]

NARRATIVE: CASE EVENT DATE: 20200430
